FAERS Safety Report 7928686-5 (Version None)
Quarter: 2011Q4

REPORT INFORMATION
  Report Type: 
  Country: None (occurrence: None)
  Receive Date: 20111118
  Receipt Date: 20111109
  Transmission Date: 20120403
  Serious: Yes (Other)
  Sender: FDA-Public Use
  Company Number: JP-B.I. PHARMACEUTICALS,INC./RIDGEFIELD-2011-EU-00247GD

PATIENT

DRUGS (2)
  1. MELOXICAM [Suspect]
     Indication: CANCER PAIN
  2. PEMETREXED [Suspect]
     Indication: NEOPLASM MALIGNANT
     Dosage: 500 MG/ME2 EVERY 3 WEEKS

REACTIONS (1)
  - HAEMATOTOXICITY [None]
